FAERS Safety Report 19299206 (Version 2)
Quarter: 2021Q4

REPORT INFORMATION
  Report Type: Spontaneous
  Country: JP (occurrence: JP)
  Receive Date: 20210524
  Receipt Date: 20211117
  Transmission Date: 20220303
  Serious: Yes (Other)
  Sender: FDA-Public Use
  Company Number: JP-PFIZER INC-2021168072

PATIENT
  Sex: Male

DRUGS (1)
  1. XELJANZ [Suspect]
     Active Substance: TOFACITINIB CITRATE
     Indication: Rheumatoid arthritis
     Dosage: 5 MG, 2X/DAY (IN THE MORNING AND EVENING)
     Route: 048
     Dates: start: 202101, end: 2021

REACTIONS (14)
  - Bladder cancer [Unknown]
  - Bladder neoplasm [Unknown]
  - Blood pressure increased [Unknown]
  - Herpes zoster [Unknown]
  - Cystitis [Unknown]
  - Pollakiuria [Unknown]
  - Nocturia [Unknown]
  - Urine output decreased [Unknown]
  - Pain [Unknown]
  - Discomfort [Unknown]
  - Feeling abnormal [Unknown]
  - Treatment noncompliance [Unknown]
  - Urinary tract infection [Unknown]
  - Micturition urgency [Unknown]

NARRATIVE: CASE EVENT DATE: 20210401
